FAERS Safety Report 4636032-8 (Version None)
Quarter: 2005Q2

REPORT INFORMATION
  Report Type: 
  Country: None (occurrence: None)
  Receive Date: 20050331
  Receipt Date: 20040416
  Transmission Date: 20051028
  Serious: Yes (Other)
  Sender: FDA-Public Use
  Company Number: 200411885BCC

PATIENT
  Age: 37 Year
  Sex: Female
  Weight: 54.4316 kg

DRUGS (3)
  1. ALEVE (CAPLET) [Suspect]
     Dosage: 220 MG, BID, ORAL
     Route: 048
     Dates: start: 20040408, end: 20040411
  2. VICODIN [Concomitant]
  3. TYLENOL [Concomitant]

REACTIONS (2)
  - HAEMATOMA [None]
  - POST PROCEDURAL HAEMATOMA [None]
